FAERS Safety Report 12226318 (Version 3)
Quarter: 2016Q2

REPORT INFORMATION
  Report Type: Spontaneous
  Country: JP (occurrence: JP)
  Receive Date: 20160331
  Receipt Date: 20160427
  Transmission Date: 20160815
  Serious: Yes (Hospitalization)
  Sender: FDA-Public Use
  Company Number: PHJP2016JP007248

PATIENT
  Age: 0 Day
  Sex: Female
  Weight: 1.84 kg

DRUGS (4)
  1. BETAMETHASONE. [Suspect]
     Active Substance: BETAMETHASONE
     Indication: FOETAL EXPOSURE DURING PREGNANCY
     Dosage: MATERNAL DOSE: 12 MG
     Route: 064
  2. APRESOLINE HYDROCHLORIDE [Suspect]
     Active Substance: HYDRALAZINE HYDROCHLORIDE
     Indication: FOETAL EXPOSURE DURING PREGNANCY
     Dosage: MATERNAL DOSE: 40 MG, QD
     Route: 064
     Dates: start: 20140413, end: 20140415
  3. MAGNESIUM SULFATE. [Suspect]
     Active Substance: MAGNESIUM SULFATE
     Indication: FOETAL EXPOSURE DURING PREGNANCY
     Dosage: UNK
     Route: 064
  4. METHYLDOPA. [Suspect]
     Active Substance: METHYLDOPA
     Indication: FOETAL EXPOSURE DURING PREGNANCY
     Dosage: MATERNAL DOSE: 750 MG/DAY
     Route: 064

REACTIONS (4)
  - Premature baby [Unknown]
  - Cerebral ventricle dilatation [Not Recovered/Not Resolved]
  - Foetal exposure during pregnancy [Unknown]
  - Low birth weight baby [Unknown]

NARRATIVE: CASE EVENT DATE: 20140415
